FAERS Safety Report 22382985 (Version 1)
Quarter: 2023Q2

REPORT INFORMATION
  Report Type: Spontaneous
  Country: US (occurrence: US)
  Receive Date: 20230530
  Receipt Date: 20230530
  Transmission Date: 20230722
  Serious: Yes (Other)
  Sender: FDA-Public Use
  Company Number: US-009507513-2305USA008308

PATIENT
  Age: 59 Year
  Sex: Female

DRUGS (2)
  1. KEYTRUDA [Suspect]
     Active Substance: PEMBROLIZUMAB
     Indication: Ovarian clear cell carcinoma
     Dosage: UNK
  2. BEVACIZUMAB [Concomitant]
     Active Substance: BEVACIZUMAB
     Dosage: UNK

REACTIONS (2)
  - Autoimmune pancreatitis [Recovering/Resolving]
  - Product use in unapproved indication [Unknown]
